FAERS Safety Report 4386177-5 (Version None)
Quarter: 2004Q2

REPORT INFORMATION
  Report Type: 
  Country: None (occurrence: None)
  Receive Date: 20040622
  Receipt Date: 20040609
  Transmission Date: 20050107
  Serious: Yes (Life-Threatening, Hospitalization)
  Sender: FDA-Public Use
  Company Number: 2004034600

PATIENT
  Age: 83 Year
  Sex: Male

DRUGS (7)
  1. NORVASC [Suspect]
     Indication: HYPERTENSION
     Dosage: 5 MG (QD), ORAL
     Route: 048
  2. WARFARIN (WARFARIN) [Suspect]
     Indication: ATRIAL FIBRILLATION
     Dosage: 1 MG (1 MG, QD), ORAL
     Route: 048
     Dates: end: 20040516
  3. SPIRONOLACTONE [Concomitant]
  4. FUROSEMIDE [Concomitant]
  5. ACETYLSALICYLIC ACID SRT [Concomitant]
  6. DIGOXIN [Concomitant]
  7. ENALAPRIL MALEATE [Concomitant]

REACTIONS (14)
  - ACTIVATED PARTIAL THROMBOPLASTIN TIME PROLONGED [None]
  - BLOOD CREATININE INCREASED [None]
  - BLOOD UREA INCREASED [None]
  - CHEST PAIN [None]
  - COAGULOPATHY [None]
  - COLITIS ISCHAEMIC [None]
  - ELECTROCARDIOGRAM ST SEGMENT DEPRESSION [None]
  - GASTRIC ULCER HAEMORRHAGE [None]
  - HAEMORRHAGIC DIATHESIS [None]
  - INTESTINAL STENOSIS [None]
  - PROTHROMBIN TIME PROLONGED [None]
  - PURPURA [None]
  - RENAL IMPAIRMENT [None]
  - URINE OUTPUT DECREASED [None]
